FAERS Safety Report 25238947 (Version 2)
Quarter: 2025Q2

REPORT INFORMATION
  Report Type: Spontaneous
  Country: FR (occurrence: FR)
  Receive Date: 20250425
  Receipt Date: 20250618
  Transmission Date: 20250717
  Serious: Yes (Other)
  Sender: ACCORD
  Company Number: FR-Accord-480414

PATIENT
  Age: 8 Year
  Sex: Female
  Weight: 28 kg

DRUGS (6)
  1. METHOTREXATE [Suspect]
     Active Substance: METHOTREXATE
     Indication: Acute lymphocytic leukaemia recurrent
     Dates: start: 202205, end: 202312
  2. DEXAMETHASONE [Concomitant]
     Active Substance: DEXAMETHASONE
     Indication: Acute lymphocytic leukaemia recurrent
     Dates: start: 2017
  3. PREDNISONE [Concomitant]
     Active Substance: PREDNISONE
     Indication: Acute lymphocytic leukaemia
     Dates: start: 2017
  4. METHOTREXATE [Suspect]
     Active Substance: METHOTREXATE
     Indication: Acute lymphocytic leukaemia recurrent
     Dates: start: 201705
  5. DEXAMETHASONE [Concomitant]
     Active Substance: DEXAMETHASONE
     Indication: Acute lymphocytic leukaemia recurrent
     Dates: start: 201809
  6. METHOTREXATE [Suspect]
     Active Substance: METHOTREXATE
     Indication: Acute lymphocytic leukaemia recurrent
     Dosage: 2.6 G/M2
     Dates: start: 201809

REACTIONS (4)
  - Foot fracture [Unknown]
  - Tibia fracture [Unknown]
  - Bone disorder [Recovering/Resolving]
  - Pathological fracture [Recovering/Resolving]

NARRATIVE: CASE EVENT DATE: 20220801
